FAERS Safety Report 24910711 (Version 1)
Quarter: 2025Q1

REPORT INFORMATION
  Report Type: Spontaneous
  Country: DE (occurrence: DE)
  Receive Date: 20250131
  Receipt Date: 20250131
  Transmission Date: 20250409
  Serious: Yes (Other)
  Sender: PFIZER
  Company Number: DE-UCBSA-2023048797

PATIENT
  Age: 29 Year

DRUGS (11)
  1. LEVETIRACETAM [Suspect]
     Active Substance: LEVETIRACETAM
     Indication: Severe myoclonic epilepsy of infancy
  2. LEVETIRACETAM [Suspect]
     Active Substance: LEVETIRACETAM
     Indication: Juvenile myoclonic epilepsy
  3. TOPIRAMATE [Suspect]
     Active Substance: TOPIRAMATE
     Indication: Generalised tonic-clonic seizure
  4. VALPROATE [Suspect]
     Active Substance: VALPROIC ACID
     Indication: Generalised tonic-clonic seizure
  5. SULTHIAME [Suspect]
     Active Substance: SULTHIAME
     Indication: Generalised tonic-clonic seizure
     Dates: start: 201307
  6. LAMOTRIGINE [Suspect]
     Active Substance: LAMOTRIGINE
     Indication: Generalised tonic-clonic seizure
     Dates: start: 201307
  7. ZONISAMIDE [Suspect]
     Active Substance: ZONISAMIDE
     Indication: Generalised tonic-clonic seizure
  8. CLOBAZAM [Suspect]
     Active Substance: CLOBAZAM
  9. ETHOSUXIMIDE [Suspect]
     Active Substance: ETHOSUXIMIDE
  10. DEXAMETHASONE [Suspect]
     Active Substance: DEXAMETHASONE
  11. BROMINE [Suspect]
     Active Substance: BROMINE

REACTIONS (9)
  - Generalised tonic-clonic seizure [Unknown]
  - Aggression [Unknown]
  - Behaviour disorder [Unknown]
  - Cognitive disorder [Unknown]
  - Myoclonus [Unknown]
  - Intention tremor [Unknown]
  - Gait disturbance [Unknown]
  - Ataxia [Unknown]
  - Drug ineffective [Unknown]

NARRATIVE: CASE EVENT DATE: 20111001
